FAERS Safety Report 26208088 (Version 1)
Quarter: 2025Q4

REPORT INFORMATION
  Report Type: Spontaneous
  Country: US (occurrence: None)
  Receive Date: 20251224
  Receipt Date: 20251224
  Transmission Date: 20260118
  Serious: Yes (Hospitalization)
  Sender: FDA-CTU
  Company Number: None

PATIENT
  Sex: Female
  Weight: 56.7 kg

DRUGS (1)
  1. ICATIBANT ACETATE [Suspect]
     Active Substance: ICATIBANT ACETATE
     Indication: Complement factor abnormal
     Dosage: 30 MG AS NEEDED SUBCUTANEOUS
     Route: 058
     Dates: start: 20241002

REACTIONS (3)
  - Swelling [None]
  - Laryngeal disorder [None]
  - Gastrointestinal disorder [None]
